FAERS Safety Report 5046819-8 (Version None)
Quarter: 2006Q3

REPORT INFORMATION
  Report Type: 
  Country: None (occurrence: None)
  Receive Date: 20060705
  Receipt Date: 20060705
  Transmission Date: 20061208
  Serious: No
  Sender: FDA-Public Use
  Company Number: None

PATIENT
  Age: 74 Year
  Sex: Female

DRUGS (1)
  1. FRAGMIN [Suspect]
     Dosage: 5000 UNIT DAILY SUBCUTANEOUS
     Route: 058
     Dates: start: 20060524, end: 20060601

REACTIONS (1)
  - INJECTION SITE HAEMORRHAGE [None]
